FAERS Safety Report 4552761-9 (Version None)
Quarter: 2005Q1

REPORT INFORMATION
  Report Type: 
  Country: None (occurrence: None)
  Receive Date: 20050112
  Receipt Date: 20050112
  Transmission Date: 20050727
  Serious: Yes (Life-Threatening, Hospitalization, Congenital Anomaly)
  Sender: FDA-Public Use
  Company Number: None

PATIENT
  Age: 34 Year
  Sex: Female
  Weight: 52.1637 kg

DRUGS (1)
  1. OFLOXACIN [Suspect]
     Indication: SKIN INFECTION
     Dosage: 1 TABLET   EVERY 12 HOURS   ORAL
     Route: 048
     Dates: start: 20041020, end: 20041021

REACTIONS (14)
  - BLISTER [None]
  - DERMATITIS EXFOLIATIVE [None]
  - DYSPNOEA [None]
  - ERYTHEMA [None]
  - FLUID RETENTION [None]
  - HEART RATE INCREASED [None]
  - INSOMNIA [None]
  - MUCOUS MEMBRANE DISORDER [None]
  - NAUSEA [None]
  - PRURITUS [None]
  - RASH [None]
  - RASH GENERALISED [None]
  - SKIN BURNING SENSATION [None]
  - SWELLING [None]
